FAERS Safety Report 12636747 (Version 1)
Quarter: 2016Q3

REPORT INFORMATION
  Report Type: Spontaneous
  Country: US (occurrence: US)
  Receive Date: 20160809
  Receipt Date: 20160809
  Transmission Date: 20161109
  Serious: No
  Sender: FDA-Public Use
  Company Number: US-GLAXOSMITHKLINE-US2016115021

PATIENT
  Sex: Female

DRUGS (3)
  1. HYDROCHLOROTHIAZIDE. [Concomitant]
     Active Substance: HYDROCHLOROTHIAZIDE
  2. SYNTHROID [Concomitant]
     Active Substance: LEVOTHYROXINE SODIUM
  3. WELLBUTRIN SR [Suspect]
     Active Substance: BUPROPION HYDROCHLORIDE
     Indication: DEPRESSION
     Dosage: 150 MG, QD
     Dates: start: 2000

REACTIONS (4)
  - Emotional disorder [Recovered/Resolved]
  - Nervousness [Recovered/Resolved]
  - Irritability [Recovered/Resolved]
  - Psychomotor hyperactivity [Recovered/Resolved]

NARRATIVE: CASE EVENT DATE: 2000
